FAERS Safety Report 6500091-8 (Version None)
Quarter: 2009Q4

REPORT INFORMATION
  Report Type: 
  Country: None (occurrence: None)
  Receive Date: 20091216
  Receipt Date: 20091207
  Transmission Date: 20100525
  Serious: Yes (Hospitalization)
  Sender: FDA-Public Use
  Company Number: BR-ABBOTT-09P-020-0604656-00

PATIENT
  Sex: Female
  Weight: 54 kg

DRUGS (8)
  1. HUMIRA [Suspect]
     Indication: CROHN'S DISEASE
     Dosage: 160MG LOADING DOSE
     Route: 058
     Dates: start: 20090701
  2. HUMIRA [Suspect]
     Route: 030
  3. HUMIRA [Suspect]
     Route: 030
  4. MESALAZINE [Concomitant]
     Indication: CROHN'S DISEASE
     Dosage: 2 - 400MG TABLETS EVERY 12 HOURS
     Route: 048
     Dates: start: 20090201
  5. AZATHIOPRINE [Concomitant]
     Indication: CROHN'S DISEASE
     Route: 048
     Dates: start: 20090601
  6. PREDNISONE [Concomitant]
     Indication: CROHN'S DISEASE
     Route: 048
     Dates: start: 20090301
  7. OMEPRAZOLE [Concomitant]
     Indication: GASTRIC DISORDER
     Route: 048
     Dates: start: 20090201
  8. FOLIC ACID [Concomitant]
     Indication: PREGNANCY
     Route: 048
     Dates: start: 20090901

REACTIONS (2)
  - ANAEMIA [None]
  - CROHN'S DISEASE [None]
